FAERS Safety Report 9816871 (Version 1)
Quarter: 2014Q1

REPORT INFORMATION
  Report Type: Spontaneous
  Country: US (occurrence: US)
  Receive Date: 20140114
  Receipt Date: 20140114
  Transmission Date: 20141002
  Serious: No
  Sender: FDA-Public Use
  Company Number: US-ENDO PHARMACEUTICALS INC.-ENDC20130044

PATIENT
  Sex: Female

DRUGS (1)
  1. ENDOCET 10MG/650MG [Suspect]
     Indication: NEURALGIA
     Dosage: 10/650 MG
     Route: 048
     Dates: start: 2013

REACTIONS (1)
  - Cough [Not Recovered/Not Resolved]
